FAERS Safety Report 13029490 (Version 1)
Quarter: 2016Q4

REPORT INFORMATION
  Report Type: Spontaneous
  Country: FR (occurrence: FR)
  Receive Date: 20161215
  Receipt Date: 20161215
  Transmission Date: 20170207
  Serious: Yes (Hospitalization)
  Sender: FDA-Public Use
  Company Number: FR-009507513-1612FRA005440

PATIENT
  Age: 79 Year
  Sex: Female
  Weight: 91 kg

DRUGS (5)
  1. EZETROL [Suspect]
     Active Substance: EZETIMIBE
     Dosage: 10 MG, QD
     Route: 048
     Dates: end: 20160930
  2. CRESTOR [Suspect]
     Active Substance: ROSUVASTATIN CALCIUM
     Dosage: 10 MG, QD
     Route: 048
  3. KARDEGIC [Concomitant]
     Active Substance: ASPIRIN LYSINE
  4. LOVENOX [Concomitant]
     Active Substance: ENOXAPARIN SODIUM
  5. LASILIX [Concomitant]
     Active Substance: FUROSEMIDE
     Dosage: 80 MG, QD

REACTIONS (2)
  - Diabetes mellitus [Not Recovered/Not Resolved]
  - Hypocholesterolaemia [Unknown]

NARRATIVE: CASE EVENT DATE: 201609
